FAERS Safety Report 18765529 (Version 1)
Quarter: 2021Q1

REPORT INFORMATION
  Report Type: Spontaneous
  Country: DE (occurrence: JP)
  Receive Date: 20210120
  Receipt Date: 20210120
  Transmission Date: 20210419
  Serious: Yes (Other)
  Sender: FDA-Public Use
  Company Number: JP-ELI_LILLY_AND_COMPANY-JP202101007348

PATIENT
  Age: 80 Year
  Sex: Male

DRUGS (2)
  1. ERBITUX [Suspect]
     Active Substance: CETUXIMAB
     Indication: SQUAMOUS CELL CARCINOMA OF THE HYPOPHARYNX
     Dosage: 600 MG/M2, UNK
     Route: 041
  2. ERBITUX [Suspect]
     Active Substance: CETUXIMAB
     Dosage: 250 MG/M2, WEEKLY (1/W)
     Route: 042

REACTIONS (4)
  - Angiopathy [Recovering/Resolving]
  - Hypothyroidism [Recovering/Resolving]
  - Carotid artery stenosis [Recovering/Resolving]
  - Off label use [Unknown]
